FAERS Safety Report 10135670 (Version 4)
Quarter: 2015Q1

REPORT INFORMATION
  Report Type: Report from Study
  Country: AU (occurrence: AU)
  Receive Date: 20140428
  Receipt Date: 20150123
  Transmission Date: 20150720
  Serious: Yes (Other)
  Sender: FDA-Public Use
  Company Number: PHHY2014AU050111

PATIENT
  Age: 63 Year
  Sex: Female

DRUGS (6)
  1. SANDOSTATIN LAR DEPOT [Suspect]
     Active Substance: OCTREOTIDE ACETATE
     Dosage: 20 MG, QMO
     Route: 030
     Dates: start: 20140417
  2. SANDOSTATIN LAR DEPOT [Suspect]
     Active Substance: OCTREOTIDE ACETATE
     Indication: ACROMEGALY
     Dosage: 20 MG, UNK
     Route: 030
  3. SOMAC [Concomitant]
     Active Substance: PANTOPRAZOLE SODIUM
     Indication: PRODUCT USED FOR UNKNOWN INDICATION
     Dosage: 20 MG, UNK
     Route: 048
  4. SANDOSTATIN LAR DEPOT [Suspect]
     Active Substance: OCTREOTIDE ACETATE
     Dosage: 20 MG, UNK
     Route: 030
  5. ZOLOFT [Concomitant]
     Active Substance: SERTRALINE HYDROCHLORIDE
     Indication: PRODUCT USED FOR UNKNOWN INDICATION
     Dosage: 100 MG, UNK
     Route: 048
  6. THYMINE [Concomitant]
     Active Substance: THYMINE
     Indication: PRODUCT USED FOR UNKNOWN INDICATION
     Dosage: 200/100
     Route: 048

REACTIONS (11)
  - Injection site pain [Recovering/Resolving]
  - Musculoskeletal stiffness [Unknown]
  - Muscle tightness [Recovering/Resolving]
  - Burning sensation [Unknown]
  - Pain in extremity [Recovered/Resolved]
  - Musculoskeletal pain [Recovering/Resolving]
  - Discomfort [Recovering/Resolving]
  - Gait disturbance [Unknown]
  - Muscular weakness [Recovering/Resolving]
  - Sleep disorder [Unknown]
  - Arthralgia [Recovered/Resolved]

NARRATIVE: CASE EVENT DATE: 20140417
